FAERS Safety Report 9931821 (Version 1)
Quarter: 2014Q1

REPORT INFORMATION
  Report Type: Spontaneous
  Country: IT (occurrence: IT)
  Receive Date: 20140228
  Receipt Date: 20140228
  Transmission Date: 20141002
  Serious: Yes (Hospitalization)
  Sender: FDA-Public Use
  Company Number: IT-BAYER-2014-028242

PATIENT
  Age: 90 Year
  Sex: Male

DRUGS (11)
  1. CARDIOASPIRIN [Suspect]
     Indication: MYOCARDIAL INFARCTION
     Dosage: 50 MG, QD
     Route: 048
     Dates: start: 20130101, end: 20130720
  2. AMIODARONE [Concomitant]
  3. BISOPROLOL [Concomitant]
     Dosage: DAILY DOSE 1.25 MG
     Route: 048
  4. RAMIPRIL [Concomitant]
     Dosage: DAILY DOSE 5 MG
  5. TAMSULOSIN [Concomitant]
  6. AVODART [Concomitant]
  7. CIPRALEX [Concomitant]
  8. LASIX [Concomitant]
     Dosage: DAILY DOSE 75 MG
  9. TRINIPLAS [Concomitant]
     Dosage: DAILY DOSE 10 MG
  10. SERETIDE [Concomitant]
  11. FOLINA [Concomitant]

REACTIONS (5)
  - Hypochromasia [Recovering/Resolving]
  - Oedema peripheral [Recovering/Resolving]
  - Anaemia [Recovering/Resolving]
  - Gastrointestinal haemorrhage [Recovering/Resolving]
  - Melaena [Recovering/Resolving]
